FAERS Safety Report 19855828 (Version 1)
Quarter: 2021Q3

REPORT INFORMATION
  Report Type: Spontaneous
  Country: US (occurrence: US)
  Receive Date: 20210920
  Receipt Date: 20210920
  Transmission Date: 20211014
  Serious: No
  Sender: FDA-Public Use
  Company Number: US-BAYER-2021-213344

PATIENT
  Age: 68 Year
  Sex: Female

DRUGS (1)
  1. CLIMARA PRO [Suspect]
     Active Substance: ESTRADIOL\LEVONORGESTREL
     Indication: HOT FLUSH
     Dosage: UNK
     Route: 062
     Dates: start: 20210831

REACTIONS (3)
  - Multiple use of single-use product [None]
  - Device use issue [None]
  - Device adhesion issue [None]

NARRATIVE: CASE EVENT DATE: 202108
